FAERS Safety Report 11257903 (Version 2)
Quarter: 2015Q3

REPORT INFORMATION
  Report Type: Spontaneous
  Country: GB (occurrence: GB)
  Receive Date: 20150710
  Receipt Date: 20150901
  Transmission Date: 20151125
  Serious: Yes (Death, Hospitalization)
  Sender: FDA-Public Use
  Company Number: GB-JNJFOC-20150703326

PATIENT
  Sex: Male

DRUGS (5)
  1. SODIUM CHLORIDE. [Suspect]
     Active Substance: SODIUM CHLORIDE
     Indication: MEDICATION DILUTION
     Route: 065
  2. DACARBAZINE. [Suspect]
     Active Substance: DACARBAZINE
     Indication: PRODUCT USED FOR UNKNOWN INDICATION
     Dosage: 720 (UNITS UNSPECIFIED) IN SODIUM CHLORIDE 0.9% BP, CONTAINER SIZE: 1000MG
     Route: 065
  3. VINBLASTINE [Suspect]
     Active Substance: VINBLASTINE
     Indication: PRODUCT USED FOR UNKNOWN INDICATION
     Dosage: IN SODIUM CHLORIDE 0.9% BP. CONTAINER SIZE: 10MG/ML.
     Route: 065
  4. BLEOMYCIN [Suspect]
     Active Substance: BLEOMYCIN SULFATE
     Indication: PRODUCT USED FOR UNKNOWN INDICATION
     Dosage: 19000 (UNITS UNSPECIFIED); IN SODIUM CHLORIDE 0.9% BP. CONTAINER TYPE/SIZE: 15000 IU
     Route: 065
  5. DOXORUBICIN [Suspect]
     Active Substance: DOXORUBICIN
     Indication: PRODUCT USED FOR UNKNOWN INDICATION
     Dosage: 200MG/200ML
     Route: 065

REACTIONS (5)
  - Chest pain [Unknown]
  - Abdominal pain upper [Unknown]
  - Malaise [Unknown]
  - Pyrexia [Unknown]
  - Death [Fatal]
